FAERS Safety Report 5836744-4 (Version None)
Quarter: 2008Q3

REPORT INFORMATION
  Report Type: 
  Country: None (occurrence: None)
  Receive Date: 20080806
  Receipt Date: 20080806
  Transmission Date: 20090109
  Serious: Yes (Disabling)
  Sender: FDA-Public Use
  Company Number: None

PATIENT
  Age: 60 Year
  Sex: Female
  Weight: 68.0396 kg

DRUGS (1)
  1. BONIVA [Suspect]
     Indication: OSTEOPOROSIS
     Dosage: 1 MONTHLY PO
     Route: 048
     Dates: start: 20080320, end: 20080620

REACTIONS (5)
  - DEPRESSION [None]
  - FATIGUE [None]
  - MUSCULOSKELETAL DISORDER [None]
  - MUSCULOSKELETAL PAIN [None]
  - NECK PAIN [None]
